FAERS Safety Report 8971780 (Version 2)
Quarter: 2013Q1

REPORT INFORMATION
  Report Type: Spontaneous
  Country: JP (occurrence: JP)
  Receive Date: 20121217
  Receipt Date: 20130130
  Transmission Date: 20140127
  Serious: Yes (Other)
  Sender: FDA-Public Use
  Company Number: JP-ASTELLAS-2012JP011674

PATIENT
  Age: 10 Year
  Sex: Male

DRUGS (16)
  1. PROGRAF [Suspect]
     Indication: PROPHYLAXIS AGAINST GRAFT VERSUS HOST DISEASE
     Dosage: UNK
     Route: 065
  2. METHOTREXATE [Concomitant]
     Indication: PROPHYLAXIS AGAINST GRAFT VERSUS HOST DISEASE
     Dosage: 7.5 MG/M2, UNKNOWN/D
     Route: 065
  3. METHOTREXATE [Concomitant]
     Dosage: 5 MG/M2, UNKNOWN/D
     Route: 065
  4. ATG                                /00575402/ [Concomitant]
     Indication: CORD BLOOD TRANSPLANT THERAPY
     Dosage: 2.5 MG/KG, UNKNOWN/D
     Route: 065
  5. ATG                                /00575402/ [Concomitant]
     Dosage: 1.25 MG/KG, UNKNOWN/D
     Route: 065
  6. CYCLOSPORIN [Concomitant]
     Dosage: UNK
     Route: 065
  7. METHYLPREDNISOLONE [Concomitant]
     Dosage: UNK
     Route: 065
  8. G-CSF [Concomitant]
     Route: 065
  9. ANTIBACTERIAL DRUG [Concomitant]
     Route: 065
  10. GAMMA GLOBULIN [Concomitant]
     Route: 065
  11. CEFEPIME [Concomitant]
     Route: 065
  12. TEICOPLANIN [Concomitant]
     Route: 065
  13. VORICONAZOLE [Concomitant]
     Route: 065
  14. ACYCLOVIR                          /00587301/ [Concomitant]
     Route: 065
  15. FLUDARABINE [Concomitant]
     Indication: CORD BLOOD TRANSPLANT THERAPY
     Dosage: 25 MG/M2, UNKNOWN/D
     Route: 065
  16. CYCLOPHOSPHAMIDE [Concomitant]
     Indication: CORD BLOOD TRANSPLANT THERAPY
     Dosage: 750 MG/M2, UNKNOWN/D
     Route: 065

REACTIONS (2)
  - Drug ineffective [Unknown]
  - Acute graft versus host disease [Unknown]
